FAERS Safety Report 10920575 (Version 2)
Quarter: 2015Q1

REPORT INFORMATION
  Report Type: Spontaneous
  Country: AR (occurrence: AR)
  Receive Date: 20150317
  Receipt Date: 20150330
  Transmission Date: 20150721
  Serious: Yes (Other)
  Sender: FDA-Public Use
  Company Number: PHHY2015AR030646

PATIENT
  Sex: Female

DRUGS (2)
  1. TRILEPTAL [Suspect]
     Active Substance: OXCARBAZEPINE
     Indication: MENINGITIS
     Dosage: UNK
     Route: 065
     Dates: start: 2007
  2. TRILEPTAL [Suspect]
     Active Substance: OXCARBAZEPINE
     Indication: EPILEPSY
     Dosage: 2100 MG, QD (600 AND 300 UNITS NOT REPORTED)
     Route: 048

REACTIONS (5)
  - Seizure [Unknown]
  - Hippocampal sclerosis [Unknown]
  - Hepatitis B [Unknown]
  - Partial seizures [Not Recovered/Not Resolved]
  - Product use issue [Unknown]
